FAERS Safety Report 21907188 (Version 1)
Quarter: 2023Q1

REPORT INFORMATION
  Report Type: Spontaneous
  Country: US (occurrence: US)
  Receive Date: 20230125
  Receipt Date: 20230125
  Transmission Date: 20230418
  Serious: No
  Sender: FDA-Public Use
  Company Number: US-VIIV HEALTHCARE LIMITED-US2023008722

PATIENT
  Age: 36 Year
  Sex: Male

DRUGS (2)
  1. VOCABRIA [Suspect]
     Active Substance: CABOTEGRAVIR SODIUM
     Indication: HIV test
     Dosage: 1 DF, QD, ONCE PER DAY WITH EDURANT
     Route: 048
     Dates: start: 20221114
  2. EDURANT [Suspect]
     Active Substance: RILPIVIRINE HYDROCHLORIDE
     Indication: HIV test
     Dosage: 1 DF, QD, ONCE PER DAY WITH VOCABRIA
     Route: 048
     Dates: start: 20221114

REACTIONS (2)
  - Anxiety [Unknown]
  - Hyperhidrosis [Unknown]

NARRATIVE: CASE EVENT DATE: 20221114
